FAERS Safety Report 5518309-7 (Version None)
Quarter: 2007Q4

REPORT INFORMATION
  Report Type: 
  Country: None (occurrence: None)
  Receive Date: 20071115
  Receipt Date: 20071109
  Transmission Date: 20080405
  Serious: Yes (Other)
  Sender: FDA-Public Use
  Company Number: ES-GENENTECH-247778

PATIENT
  Sex: Male

DRUGS (1)
  1. RAPTIVA [Suspect]
     Indication: PSORIASIS
     Dosage: UNK, UNK
     Dates: start: 20070129, end: 20070701

REACTIONS (2)
  - CASTLEMAN'S DISEASE [None]
  - LYMPHADENOPATHY [None]
